FAERS Safety Report 16151472 (Version 1)
Quarter: 2019Q2

REPORT INFORMATION
  Report Type: Report from Study
  Country: DE (occurrence: DE)
  Receive Date: 20190403
  Receipt Date: 20190403
  Transmission Date: 20190711
  Serious: Yes (Other)
  Sender: FDA-Public Use
  Company Number: DE-TEVA-2019-DE-1031914

PATIENT
  Age: 54 Year
  Sex: Female

DRUGS (3)
  1. ABATACEPT [Suspect]
     Active Substance: ABATACEPT
     Indication: RHEUMATOID ARTHRITIS
     Dosage: 125 MG WEEKLY ;INTERRUPTED  10DEC2013
     Route: 058
     Dates: start: 20130722
  2. METHOTREXATE. [Suspect]
     Active Substance: METHOTREXATE
     Indication: PRODUCT USED FOR UNKNOWN INDICATION
     Dosage: 15 MG, QWK
     Route: 058
  3. FOLSAURE [Concomitant]
     Active Substance: FOLIC ACID
     Dosage: 5 MG WEEKLY
     Route: 048

REACTIONS (3)
  - Oedema peripheral [Recovering/Resolving]
  - Hypertensive crisis [Recovering/Resolving]
  - Tachycardia [Recovering/Resolving]

NARRATIVE: CASE EVENT DATE: 201310
